FAERS Safety Report 5119300-5 (Version None)
Quarter: 2006Q3

REPORT INFORMATION
  Report Type: 
  Country: None (occurrence: None)
  Receive Date: 20060928
  Receipt Date: 20060919
  Transmission Date: 20061208
  Serious: Yes (Hospitalization)
  Sender: FDA-Public Use
  Company Number: 14804

PATIENT
  Age: 37 Year
  Sex: Female

DRUGS (2)
  1. CYTARABINE [Suspect]
     Indication: ACUTE MYELOID LEUKAEMIA
     Dates: start: 20060804, end: 20060809
  2. CEP-701 [Suspect]
     Indication: ACUTE MYELOID LEUKAEMIA
     Dosage: 80 MG DAILY PO
     Route: 048
     Dates: start: 20060811

REACTIONS (1)
  - FEBRILE NEUTROPENIA [None]
